FAERS Safety Report 8603023-1 (Version None)
Quarter: 2012Q3

REPORT INFORMATION
  Report Type: 
  Country: None (occurrence: None)
  Receive Date: 20120817
  Receipt Date: 20120605
  Transmission Date: 20120928
  Serious: No
  Sender: FDA-Public Use
  Company Number: US-GLAXOSMITHKLINE-A0980620A

PATIENT
  Age: 77 Year
  Sex: Female

DRUGS (1)
  1. VOTRIENT [Suspect]
     Indication: RENAL CANCER
     Dosage: 200MG TWICE PER DAY
     Route: 048
     Dates: start: 20120509, end: 20120604

REACTIONS (4)
  - PYREXIA [None]
  - FATIGUE [None]
  - RASH [None]
  - DECREASED APPETITE [None]
